FAERS Safety Report 7414355-7 (Version None)
Quarter: 2011Q2

REPORT INFORMATION
  Report Type: 
  Country: None (occurrence: None)
  Receive Date: 20110411
  Receipt Date: 20110411
  Transmission Date: 20111010
  Serious: Yes (Hospitalization)
  Sender: FDA-Public Use
  Company Number: None

PATIENT
  Sex: Male
  Weight: 89.9 kg

DRUGS (11)
  1. DOXAZOSIN [Concomitant]
  2. AMLODIPINE BESYLATE [Concomitant]
  3. TRAMADOL HCL [Concomitant]
  4. CALCIUM WITH D [Concomitant]
  5. LEVAQUIN [Concomitant]
  6. BENAZEPRIL HYDROCHLORIDE [Concomitant]
  7. ELIGARD [Concomitant]
  8. REVLIMID [Suspect]
     Indication: PROSTATE CANCER
     Dosage: 25 MG QD X 21 PO
     Route: 048
  9. FINASTERIDE [Concomitant]
  10. WARFARIN [Concomitant]
  11. ACETAMINOPHEN [Concomitant]

REACTIONS (4)
  - HYPOTENSION [None]
  - DEHYDRATION [None]
  - FATIGUE [None]
  - BLOOD PRESSURE DECREASED [None]
